FAERS Safety Report 17166450 (Version 1)
Quarter: 2019Q4

REPORT INFORMATION
  Report Type: Spontaneous
  Country: US (occurrence: US)
  Receive Date: 20191125
  Receipt Date: 20191125
  Transmission Date: 20200122
  Serious: Yes (Hospitalization)
  Sender: FDA-Public Use
  Company Number: None

PATIENT
  Age: 58 Year
  Sex: Male
  Weight: 66.5 kg

DRUGS (4)
  1. ETOPOSIDE (VP- 16) [Suspect]
     Active Substance: ETOPOSIDE
     Dates: end: 20191108
  2. PACLITAXEL. [Suspect]
     Active Substance: PACLITAXEL
     Dates: end: 20191001
  3. CARBOPLATIN. [Suspect]
     Active Substance: CARBOPLATIN
     Dates: end: 20191108
  4. IFOSAMIDE [Suspect]
     Active Substance: IFOSFAMIDE
     Dates: end: 20191003

REACTIONS (1)
  - Pyrexia [None]

NARRATIVE: CASE EVENT DATE: 20191018
